FAERS Safety Report 18177101 (Version 1)
Quarter: 2020Q3

REPORT INFORMATION
  Report Type: Report from Study
  Country: US (occurrence: US)
  Receive Date: 20200820
  Receipt Date: 20200820
  Transmission Date: 20201103
  Serious: Yes (Hospitalization)
  Sender: FDA-Public Use
  Company Number: US-EXELIXIS-XL18420032062

PATIENT

DRUGS (4)
  1. NIVOLUMAB [Suspect]
     Active Substance: NIVOLUMAB
     Dosage: 480 MG ON DAY 1, CYCLE 5+
     Route: 042
     Dates: end: 20200225
  2. NIVOLUMAB [Suspect]
     Active Substance: NIVOLUMAB
     Indication: TRANSITIONAL CELL CARCINOMA
     Dosage: 3 MG/KG ON DAY 1, CYCLE 1?4
     Route: 042
     Dates: start: 20191203
  3. XL184 [Suspect]
     Active Substance: CABOZANTINIB
     Indication: TRANSITIONAL CELL CARCINOMA
     Dosage: 40 MG, QD, CYCLE 1?4, CYCLE 5+
     Route: 048
     Dates: start: 20191203, end: 20200324
  4. IPILIMUMAB [Suspect]
     Active Substance: IPILIMUMAB
     Indication: TRANSITIONAL CELL CARCINOMA
     Dosage: 1 MG/KG ON DAY 1, CYCLE 1?4
     Route: 042
     Dates: start: 20191203, end: 20200204

REACTIONS (3)
  - Stomatitis [Not Recovered/Not Resolved]
  - Sialoadenitis [Not Recovered/Not Resolved]
  - Immune-mediated thyroiditis [Not Recovered/Not Resolved]

NARRATIVE: CASE EVENT DATE: 20200421
